FAERS Safety Report 5117818-2 (Version None)
Quarter: 2006Q3

REPORT INFORMATION
  Report Type: 
  Country: None (occurrence: None)
  Receive Date: 20060929
  Receipt Date: 20060919
  Transmission Date: 20061208
  Serious: Yes (Other)
  Sender: FDA-Public Use
  Company Number: DE-JNJFOC-20060904153

PATIENT

DRUGS (1)
  1. TARIVID [Suspect]
     Indication: URINARY TRACT INFECTION
     Route: 065

REACTIONS (3)
  - GAIT DISTURBANCE [None]
  - MYALGIA [None]
  - NERVOUS SYSTEM DISORDER [None]
